FAERS Safety Report 7385265-9 (Version None)
Quarter: 2011Q1

REPORT INFORMATION
  Report Type: 
  Country: None (occurrence: None)
  Receive Date: 20110330
  Receipt Date: 20100216
  Transmission Date: 20110831
  Serious: No
  Sender: FDA-Public Use
  Company Number: US-MYLANLABS-2010S1002670

PATIENT
  Age: 56 Year
  Sex: Female

DRUGS (7)
  1. LITHIUM [Suspect]
     Route: 048
  2. LITHIUM [Suspect]
     Indication: DEPRESSION
     Route: 048
  3. EMSAM [Suspect]
     Indication: DEPRESSION
     Dosage: QD
     Route: 062
     Dates: start: 20070101
  4. SYNTHROID [Concomitant]
     Indication: HYPOTHYROIDISM
     Route: 048
  5. VALTREX [Concomitant]
     Indication: HERPES VIRUS INFECTION
     Route: 048
     Dates: start: 20091101
  6. LYRICA [Suspect]
     Indication: FIBROMYALGIA
     Route: 048
  7. KAPIDEX [Concomitant]
     Indication: NAUSEA
     Route: 048

REACTIONS (5)
  - NAUSEA [None]
  - WEIGHT INCREASED [None]
  - RASH [None]
  - LOCALISED OEDEMA [None]
  - DIARRHOEA [None]
